FAERS Safety Report 9717051 (Version 1)
Quarter: 2013Q4

REPORT INFORMATION
  Report Type: Spontaneous
  Country: US (occurrence: US)
  Receive Date: 20131127
  Receipt Date: 20131127
  Transmission Date: 20140711
  Serious: No
  Sender: FDA-Public Use
  Company Number: US-GILEAD-2009-0020745

PATIENT
  Sex: Female
  Weight: 67.13 kg

DRUGS (14)
  1. LETAIRIS [Suspect]
     Indication: PULMONARY ARTERIAL HYPERTENSION
     Route: 048
     Dates: start: 20090219
  2. BENADRYL [Concomitant]
  3. FUROSEMIDE [Concomitant]
  4. CARTIA [Concomitant]
  5. METOPROLOL [Concomitant]
  6. LEVOTHYROID [Concomitant]
  7. ALBUTEROL [Concomitant]
  8. ACTONEL [Concomitant]
  9. IBU [Concomitant]
  10. ECOTRIN [Concomitant]
  11. POTASSIUM CHLORIDE [Concomitant]
  12. CALCIUM [Concomitant]
  13. MULTIVITAMIN [Concomitant]
  14. VITAMIN D [Concomitant]

REACTIONS (3)
  - Eye swelling [Unknown]
  - Eye pruritus [Unknown]
  - Urticaria [Unknown]
